FAERS Safety Report 5533289-6 (Version None)
Quarter: 2007Q4

REPORT INFORMATION
  Report Type: 
  Country: None (occurrence: None)
  Receive Date: 20071130
  Receipt Date: 20071130
  Transmission Date: 20080405
  Serious: Yes (Hospitalization)
  Sender: FDA-Public Use
  Company Number: None

PATIENT
  Sex: Male
  Weight: 68.4 kg

DRUGS (4)
  1. DEFERASIROX [Suspect]
     Indication: IRON OVERLOAD
     Dosage: 1 GRAM  DAILY  PO
     Route: 048
  2. KETOROLAC [Suspect]
     Indication: PAIN
     Dosage: 30MG  Q6H  IV
     Route: 042
     Dates: start: 20070729, end: 20070731
  3. IBUPROFEN [Concomitant]
  4. GENTAMICIN [Concomitant]

REACTIONS (6)
  - BLOOD CREATININE INCREASED [None]
  - BLOOD UREA INCREASED [None]
  - CHOLECYSTECTOMY [None]
  - ENDOSCOPIC RETROGRADE CHOLANGIOPANCREATOGRAPHY [None]
  - HAEMODIALYSIS [None]
  - PROCEDURAL HYPOTENSION [None]
